FAERS Safety Report 8473200-1 (Version None)
Quarter: 2012Q2

REPORT INFORMATION
  Report Type: 
  Country: None (occurrence: None)
  Receive Date: 20120627
  Receipt Date: 20120621
  Transmission Date: 20120825
  Serious: Yes (Other)
  Sender: FDA-Public Use
  Company Number: US-FRI-1000031551

PATIENT
  Sex: Female

DRUGS (5)
  1. XANAX [Concomitant]
  2. LOSARTAN POTASSIUM [Concomitant]
  3. VIIBRYD [Suspect]
     Indication: ANXIETY
  4. PROTONIX [Concomitant]
  5. VIIBRYD [Suspect]
     Indication: DEPRESSION
     Dosage: 40 MG
     Route: 048
     Dates: start: 20120518, end: 20120614

REACTIONS (1)
  - SUICIDAL IDEATION [None]
